FAERS Safety Report 7519347-5 (Version None)
Quarter: 2011Q2

REPORT INFORMATION
  Report Type: 
  Country: None (occurrence: None)
  Receive Date: 20110602
  Receipt Date: 20110524
  Transmission Date: 20111010
  Serious: Yes (Hospitalization)
  Sender: FDA-Public Use
  Company Number: US-ASTRAZENECA-2011SE25517

PATIENT
  Age: 63 Year
  Sex: Female
  Weight: 67.6 kg

DRUGS (5)
  1. ASPIRIN [Concomitant]
     Route: 048
  2. NEXIUM [Suspect]
     Route: 048
  3. ZOCOR [Concomitant]
     Route: 048
  4. VERAPAMIL [Concomitant]
     Route: 048
  5. EFFEXOR [Concomitant]
     Route: 048

REACTIONS (1)
  - CEREBROVASCULAR ACCIDENT [None]
